FAERS Safety Report 21009151 (Version 1)
Quarter: 2022Q2

REPORT INFORMATION
  Report Type: Spontaneous
  Country: US (occurrence: None)
  Receive Date: 20220626
  Receipt Date: 20220626
  Transmission Date: 20220721
  Serious: No
  Sender: FDA-Public Use
  Company Number: None

PATIENT
  Sex: 0

DRUGS (1)
  1. .DELTA.8-TETRAHYDROCANNABINOL\HERBALS [Suspect]
     Active Substance: .DELTA.8-TETRAHYDROCANNABINOL\HERBALS
     Indication: Anxiety
     Dosage: FREQUENCY : AS NEEDED;?
     Route: 060
     Dates: start: 20220623, end: 20220623

REACTIONS (3)
  - Hallucination [None]
  - Heart rate increased [None]
  - Feeling hot [None]

NARRATIVE: CASE EVENT DATE: 20220624
